FAERS Safety Report 10487359 (Version 6)
Quarter: 2015Q2

REPORT INFORMATION
  Report Type: Report from Study
  Country: US (occurrence: US)
  Receive Date: 20141001
  Receipt Date: 20150528
  Transmission Date: 20150821
  Serious: Yes (Other)
  Sender: FDA-Public Use
  Company Number: US-SA-2014SA111363

PATIENT
  Age: 39 Year
  Sex: Female

DRUGS (2)
  1. AUBAGIO [Suspect]
     Active Substance: TERIFLUNOMIDE
     Indication: MULTIPLE SCLEROSIS
     Route: 048
     Dates: start: 20140925
  2. AUBAGIO [Suspect]
     Active Substance: TERIFLUNOMIDE
     Indication: MULTIPLE SCLEROSIS
     Route: 048
     Dates: start: 20140731, end: 20140904

REACTIONS (9)
  - Fatigue [Unknown]
  - Eye operation [Unknown]
  - Haematochezia [Recovered/Resolved]
  - Abdominal discomfort [Unknown]
  - Hepatic enzyme increased [Unknown]
  - Sunburn [Unknown]
  - Alopecia [Unknown]
  - Diarrhoea [Unknown]
  - Headache [Not Recovered/Not Resolved]

NARRATIVE: CASE EVENT DATE: 201408
